FAERS Safety Report 11290241 (Version 1)
Quarter: 2015Q3

REPORT INFORMATION
  Report Type: Report from Study
  Country: BR (occurrence: BR)
  Receive Date: 20150721
  Receipt Date: 20150721
  Transmission Date: 20151125
  Serious: Yes (Other)
  Sender: FDA-Public Use
  Company Number: BR-ROCHE-1375620

PATIENT
  Sex: Female
  Weight: 56 kg

DRUGS (5)
  1. PROFENID [Concomitant]
     Active Substance: KETOPROFEN
  2. FOLIC ACID. [Concomitant]
     Active Substance: FOLIC ACID
  3. ACTEMRA [Suspect]
     Active Substance: TOCILIZUMAB
     Indication: RHEUMATOID ARTHRITIS
     Route: 042
     Dates: start: 20131220, end: 20141001
  4. METHOTREXATE [Concomitant]
     Active Substance: METHOTREXATE
  5. DEFLAZACORT [Concomitant]
     Active Substance: DEFLAZACORT

REACTIONS (5)
  - Cough [Recovering/Resolving]
  - Immunodeficiency [Not Recovered/Not Resolved]
  - Inflammation [Not Recovered/Not Resolved]
  - Arthropathy [Not Recovered/Not Resolved]
  - Alopecia [Not Recovered/Not Resolved]
